FAERS Safety Report 4531253-7 (Version None)
Quarter: 2004Q4

REPORT INFORMATION
  Report Type: 
  Country: None (occurrence: None)
  Receive Date: 20041206
  Receipt Date: 20040903
  Transmission Date: 20050328
  Serious: No
  Sender: FDA-Public Use
  Company Number: USA040977304

PATIENT
  Age: 32 Year
  Sex: Male
  Weight: 71 kg

DRUGS (4)
  1. CYMBALTA [Suspect]
     Indication: DEPRESSION
     Dosage: 30 MG
     Dates: start: 20040901
  2. WELLBUTRIN [Concomitant]
  3. TRIZIVIR [Concomitant]
  4. RITALIN [Concomitant]

REACTIONS (8)
  - BRUXISM [None]
  - CHILLS [None]
  - DRY MOUTH [None]
  - HYPERHIDROSIS [None]
  - HYPERSENSITIVITY [None]
  - MIDDLE INSOMNIA [None]
  - NAUSEA [None]
  - NIGHTMARE [None]
